FAERS Safety Report 7704515-X (Version None)
Quarter: 2011Q3

REPORT INFORMATION
  Report Type: 
  Country: None (occurrence: None)
  Receive Date: 20110823
  Receipt Date: 20110818
  Transmission Date: 20111222
  Serious: Yes (Hospitalization, Other)
  Sender: FDA-Public Use
  Company Number: US-PFIZER INC-2011128922

PATIENT
  Sex: Female

DRUGS (6)
  1. AMITRIPTYLINE [Concomitant]
     Indication: DEPRESSION
     Dosage: UNK
     Dates: start: 20040101
  2. CHANTIX [Suspect]
     Dosage: 0.5MG AND 1MG UNK
     Dates: start: 20070801
  3. METOPROLOL [Concomitant]
     Indication: BLOOD PRESSURE
     Dosage: UNK
     Dates: start: 20050101
  4. CHANTIX [Suspect]
     Dosage: 0.5MG AND 1MG UNK
     Dates: start: 20070501
  5. CELEXA [Concomitant]
     Indication: DEPRESSION
     Dosage: UNK
     Dates: start: 20040101
  6. CHANTIX [Suspect]
     Indication: SMOKING CESSATION THERAPY
     Dosage: 0.5MG AND 1MG,UNK
     Dates: start: 20070101, end: 20070201

REACTIONS (7)
  - INTENTIONAL OVERDOSE [None]
  - MOOD SWINGS [None]
  - ABNORMAL BEHAVIOUR [None]
  - ANXIETY [None]
  - SUICIDE ATTEMPT [None]
  - AGGRESSION [None]
  - DEPRESSION [None]
